FAERS Safety Report 12640259 (Version 1)
Quarter: 2016Q3

REPORT INFORMATION
  Report Type: Spontaneous
  Country: US (occurrence: None)
  Receive Date: 20160809
  Receipt Date: 20160809
  Transmission Date: 20161109
  Serious: Yes (Hospitalization)
  Sender: FDA-Public Use
  Company Number: None

PATIENT
  Age: 64 Year
  Sex: Female
  Weight: 100 kg

DRUGS (1)
  1. DULAGLUTIDE, 1.5 UNITS [Suspect]
     Active Substance: DULAGLUTIDE
     Indication: BLOOD GLUCOSE ABNORMAL
     Route: 058
     Dates: start: 20160616, end: 20160707

REACTIONS (15)
  - Hypokalaemia [None]
  - Diarrhoea [None]
  - Hypotension [None]
  - Bradycardia [None]
  - Hypothermia [None]
  - Nausea [None]
  - Urine output decreased [None]
  - Fall [None]
  - Hyponatraemia [None]
  - Acute kidney injury [None]
  - Troponin increased [None]
  - Dizziness postural [None]
  - Abdominal pain [None]
  - Asthenia [None]
  - Leukocytosis [None]

NARRATIVE: CASE EVENT DATE: 20160717
